FAERS Safety Report 15855442 (Version 2)
Quarter: 2019Q1

REPORT INFORMATION
  Report Type: Spontaneous
  Country: US (occurrence: US)
  Receive Date: 20190122
  Receipt Date: 20190225
  Transmission Date: 20190417
  Serious: Yes (Hospitalization, Other)
  Sender: FDA-Public Use
  Company Number: US-PFIZER INC-2018536788

PATIENT
  Age: 39 Year
  Sex: Male
  Weight: 59 kg

DRUGS (3)
  1. LYRICA [Suspect]
     Active Substance: PREGABALIN
     Indication: FIBROMYALGIA
     Dosage: 150 MG, 3X/DAY
     Route: 048
     Dates: start: 2012
  2. XANAX [Concomitant]
     Active Substance: ALPRAZOLAM
     Indication: POST-TRAUMATIC STRESS DISORDER
     Dosage: 1 MG, 3X/DAY
     Route: 048
     Dates: start: 2010
  3. ALPRAZOLAM. [Concomitant]
     Active Substance: ALPRAZOLAM
     Indication: POST-TRAUMATIC STRESS DISORDER
     Dosage: 1 MG, 3X/DAY

REACTIONS (14)
  - Visual impairment [Unknown]
  - Cerebrovascular accident [Not Recovered/Not Resolved]
  - Rheumatoid arthritis [Unknown]
  - Hemiplegia [Unknown]
  - Road traffic accident [Unknown]
  - Mobility decreased [Unknown]
  - Pneumothorax [Recovering/Resolving]
  - Tunnel vision [Unknown]
  - Rib fracture [Recovering/Resolving]
  - Product use issue [Unknown]
  - Weight decreased [Unknown]
  - Intentional product misuse [Unknown]
  - Sciatic nerve injury [Unknown]
  - Hip fracture [Unknown]

NARRATIVE: CASE EVENT DATE: 2012
